FAERS Safety Report 6414721-2 (Version None)
Quarter: 2009Q4

REPORT INFORMATION
  Report Type: 
  Country: None (occurrence: None)
  Receive Date: 20091026
  Receipt Date: 20091026
  Transmission Date: 20100525
  Serious: No
  Sender: FDA-Public Use
  Company Number: None

PATIENT
  Sex: Female
  Weight: 115.6672 kg

DRUGS (1)
  1. BENAZEPRIL HCL AND HYDROCHLOROTHIAZIDE [Suspect]
     Indication: HYPERTENSION
     Dosage: 20-12.5MG ONE DAILY P.O.
     Route: 048
     Dates: start: 20090515

REACTIONS (3)
  - DRY MOUTH [None]
  - PRURITUS [None]
  - TONGUE DRY [None]
